FAERS Safety Report 7710750-7 (Version None)
Quarter: 2011Q3

REPORT INFORMATION
  Report Type: 
  Country: None (occurrence: None)
  Receive Date: 20110825
  Receipt Date: 20110816
  Transmission Date: 20111222
  Serious: Yes (Hospitalization, Other)
  Sender: FDA-Public Use
  Company Number: US-BAXTER-2011BH024390

PATIENT
  Age: 56 Year
  Sex: Female
  Weight: 63 kg

DRUGS (10)
  1. PAXIL [Concomitant]
     Indication: DEPRESSION
     Route: 065
  2. PRILOSEC [Concomitant]
     Indication: GASTROOESOPHAGEAL REFLUX DISEASE
     Route: 065
  3. ADVAIR DISKUS 100/50 [Concomitant]
     Indication: LUNG DISORDER
     Route: 065
  4. CALCIUM CARBONATE [Concomitant]
     Indication: MINERAL SUPPLEMENTATION
     Route: 065
  5. GAMMAGARD LIQUID [Suspect]
     Route: 042
     Dates: start: 20110614
  6. THEO-24 [Concomitant]
     Indication: LUNG DISORDER
     Route: 065
  7. FISH OIL [Concomitant]
     Indication: SUPPLEMENTATION THERAPY
     Route: 065
  8. MUCINEX [Concomitant]
     Indication: LUNG DISORDER
     Route: 065
  9. DIPHENHYDRAMINE HCL [Concomitant]
     Indication: PREMEDICATION
     Route: 042
     Dates: start: 20110706
  10. GAMMAGARD LIQUID [Suspect]
     Indication: IMMUNODEFICIENCY
     Route: 042
     Dates: start: 20110706, end: 20110706

REACTIONS (2)
  - WHEEZING [None]
  - CHRONIC OBSTRUCTIVE PULMONARY DISEASE [None]
